FAERS Safety Report 6648969-9 (Version None)
Quarter: 2010Q1

REPORT INFORMATION
  Report Type: 
  Country: None (occurrence: None)
  Receive Date: 20100324
  Receipt Date: 20100315
  Transmission Date: 20100710
  Serious: Yes (Hospitalization)
  Sender: FDA-Public Use
  Company Number: JP-MERCK-1003USA02986

PATIENT
  Age: 84 Year
  Sex: Male

DRUGS (14)
  1. HYZAAR [Suspect]
     Route: 048
     Dates: start: 20091201, end: 20100301
  2. DOXAZOSIN MESYLATE [Concomitant]
     Route: 048
  3. NORVASC [Concomitant]
     Route: 048
  4. ASPIRIN [Concomitant]
     Route: 048
  5. PLAVIX [Concomitant]
     Route: 048
  6. OMEPRAL [Concomitant]
     Route: 065
  7. GLYSENNID [Concomitant]
     Route: 048
  8. LIPITOR [Concomitant]
     Route: 048
  9. ARGAMATE JELLY [Concomitant]
     Route: 048
  10. METHYCOBAL [Concomitant]
     Route: 048
  11. PHENOBARBITAL TAB [Concomitant]
     Route: 048
  12. OPALMON [Concomitant]
     Route: 048
  13. SERMION [Concomitant]
     Route: 048
  14. OKIMINAS [Concomitant]
     Route: 048

REACTIONS (1)
  - INTERSTITIAL LUNG DISEASE [None]
